FAERS Safety Report 5818618-8 (Version None)
Quarter: 2008Q3

REPORT INFORMATION
  Report Type: 
  Country: None (occurrence: None)
  Receive Date: 20080722
  Receipt Date: 20080711
  Transmission Date: 20090109
  Serious: Yes (Hospitalization)
  Sender: FDA-Public Use
  Company Number: US-ELI_LILLY_AND_COMPANY-US200807002316

PATIENT
  Sex: Male
  Weight: 113.38 kg

DRUGS (4)
  1. BYETTA [Suspect]
     Indication: TYPE 2 DIABETES MELLITUS
     Dosage: 10 UG, 2/D
     Route: 058
     Dates: start: 20070101
  2. SIMVASTATIN [Concomitant]
     Indication: BLOOD CHOLESTEROL
  3. CLONIDINE [Concomitant]
     Indication: BLOOD PRESSURE
  4. POTASSIUM CHLORIDE [Concomitant]

REACTIONS (18)
  - BLOOD GLUCOSE INCREASED [None]
  - COLD SWEAT [None]
  - DEHYDRATION [None]
  - DIARRHOEA [None]
  - EAR INFECTION [None]
  - EAR PAIN [None]
  - EPISTAXIS [None]
  - HYPOTENSION [None]
  - INTERNATIONAL NORMALISED RATIO DECREASED [None]
  - INTERNATIONAL NORMALISED RATIO INCREASED [None]
  - LABYRINTHITIS [None]
  - ODYNOPHAGIA [None]
  - OROPHARYNGEAL PAIN [None]
  - OXYGEN SATURATION DECREASED [None]
  - PULMONARY EMBOLISM [None]
  - SINUS DISORDER [None]
  - THROMBOSIS [None]
  - WEIGHT DECREASED [None]
